FAERS Safety Report 9068171 (Version 1)
Quarter: 2013Q1

REPORT INFORMATION
  Report Type: Report from Study
  Country: DE (occurrence: DE)
  Receive Date: 20130128
  Receipt Date: 20130128
  Transmission Date: 20140127
  Serious: Yes (Hospitalization)
  Sender: FDA-Public Use
  Company Number: DE-ROCHE-1182835

PATIENT
  Sex: Female

DRUGS (4)
  1. TRASTUZUMAB [Suspect]
     Indication: BREAST CANCER
     Route: 042
     Dates: start: 20110808, end: 20120813
  2. CAPECITABINE [Suspect]
     Indication: BREAST CANCER
     Route: 048
     Dates: start: 20110729
  3. GLUCOSAMINE SULFATE [Concomitant]
     Indication: OSTEOPOROSIS
     Route: 065
     Dates: start: 2012
  4. CALCIUM D3 [Concomitant]
     Indication: OSTEOPOROSIS
     Route: 048
     Dates: start: 2012

REACTIONS (1)
  - Vestibular neuronitis [Recovered/Resolved]
